FAERS Safety Report 9201525 (Version 2)
Quarter: 2013Q2

REPORT INFORMATION
  Report Type: Spontaneous
  Country: US (occurrence: US)
  Receive Date: 20130401
  Receipt Date: 20130515
  Transmission Date: 20140414
  Serious: Yes (Other)
  Sender: FDA-Public Use
  Company Number: US-PFIZER INC-2013102699

PATIENT
  Age: 52 Year
  Sex: Female
  Weight: 65 kg

DRUGS (5)
  1. LYRICA [Suspect]
     Indication: PAIN
     Dosage: 50 MG, UNK
     Route: 048
     Dates: start: 200401
  2. LYRICA [Suspect]
     Indication: POST HERPETIC NEURALGIA
     Dosage: 300 MG, 2X/DAY
     Route: 048
  3. LYRICA [Suspect]
     Dosage: UNK
     Route: 048
     Dates: end: 201302
  4. XANAX [Concomitant]
     Dosage: UNK
  5. ZOLOFT [Concomitant]
     Dosage: UNK

REACTIONS (14)
  - Systemic lupus erythematosus [Unknown]
  - Aphagia [Unknown]
  - Mental disorder [Unknown]
  - Fibromyalgia [Unknown]
  - Arthritis [Unknown]
  - Arthropathy [Unknown]
  - Diarrhoea [Unknown]
  - Arthralgia [Unknown]
  - Vomiting [Unknown]
  - Abdominal pain [Unknown]
  - General physical health deterioration [Unknown]
  - Insomnia [Unknown]
  - Pain [Unknown]
  - Therapeutic response unexpected [Unknown]
